FAERS Safety Report 5556794-5 (Version None)
Quarter: 2007Q4

REPORT INFORMATION
  Report Type: 
  Country: None (occurrence: None)
  Receive Date: 20071130
  Receipt Date: 20070919
  Transmission Date: 20080405
  Serious: No
  Sender: FDA-Public Use
  Company Number: 2007PV028104

PATIENT
  Age: 59 Year
  Sex: Female

DRUGS (7)
  1. EXENATIDE(EXENATIDE) PEN,DISPOSABLE [Suspect]
     Indication: INSULIN-REQUIRING TYPE II DIABETES MELLITUS
     Dosage: 10 UG, 2/D, SUBCUTANEOUS, 5 UG, 2/D, SUBCUTANEOUS, 10 G, SUBCUTANEOUS
     Route: 058
     Dates: start: 20060804, end: 20060901
  2. EXENATIDE(EXENATIDE) PEN,DISPOSABLE [Suspect]
     Indication: INSULIN-REQUIRING TYPE II DIABETES MELLITUS
     Dosage: 10 UG, 2/D, SUBCUTANEOUS, 5 UG, 2/D, SUBCUTANEOUS, 10 G, SUBCUTANEOUS
     Route: 058
     Dates: start: 20060901
  3. HUMULIN N [Concomitant]
  4. INSULIN, REGULAR (INSULIN) [Concomitant]
  5. GLYBURIDE [Concomitant]
  6. LEVEMIR (INSULIN DETEMIR) [Concomitant]
  7. METFORMIN HCL [Concomitant]

REACTIONS (7)
  - BLOOD GLUCOSE DECREASED [None]
  - BLOOD GLUCOSE FLUCTUATION [None]
  - BLOOD GLUCOSE INCREASED [None]
  - GLYCOSYLATED HAEMOGLOBIN INCREASED [None]
  - MALAISE [None]
  - TREMOR [None]
  - WEIGHT DECREASED [None]
